FAERS Safety Report 16612654 (Version 2)
Quarter: 2019Q3

REPORT INFORMATION
  Report Type: Report from Study
  Country: US (occurrence: US)
  Receive Date: 20190722
  Receipt Date: 20190730
  Transmission Date: 20191004
  Serious: Yes (Hospitalization, Other)
  Sender: FDA-Public Use
  Company Number: US-TAKEDA-2018TUS002204

PATIENT
  Sex: Female

DRUGS (3)
  1. PONATINIB [Suspect]
     Active Substance: PONATINIB
     Indication: CHRONIC MYELOID LEUKAEMIA (IN REMISSION)
     Dosage: 30 MILLIGRAM, QD
     Route: 048
     Dates: start: 201712
  2. ASPIRIN                            /00002701/ [Concomitant]
     Active Substance: ASPIRIN
     Dosage: 81 MG, QD
     Route: 065
  3. IMBRUVICA [Concomitant]
     Active Substance: IBRUTINIB
     Dosage: UNK

REACTIONS (11)
  - Pain [Unknown]
  - Gait disturbance [Unknown]
  - Sleep disorder [Unknown]
  - Blood pressure increased [Unknown]
  - Pericardial effusion [Unknown]
  - Blood pressure decreased [Unknown]
  - Fatigue [Unknown]
  - Blood urine present [Recovered/Resolved]
  - Dizziness [Unknown]
  - Sepsis [Unknown]
  - Peripheral swelling [Unknown]
